FAERS Safety Report 5618499-1 (Version None)
Quarter: 2008Q1

REPORT INFORMATION
  Report Type: 
  Country: None (occurrence: None)
  Receive Date: 20080207
  Receipt Date: 20080131
  Transmission Date: 20080703
  Serious: Yes (Hospitalization)
  Sender: FDA-Public Use
  Company Number: B0506866A

PATIENT
  Age: 70 Year
  Sex: Female
  Weight: 90 kg

DRUGS (1)
  1. SERETIDE [Suspect]
     Indication: ASTHMA
     Route: 055
     Dates: start: 20070201

REACTIONS (6)
  - BONE PAIN [None]
  - COUGH [None]
  - HAEMORRHAGE SUBCUTANEOUS [None]
  - INCREASED VISCOSITY OF BRONCHIAL SECRETION [None]
  - PLASMAPHERESIS [None]
  - VISUAL ACUITY REDUCED [None]
